FAERS Safety Report 9952425 (Version 1)
Quarter: 2014Q1

REPORT INFORMATION
  Report Type: Report from Study
  Country: US (occurrence: US)
  Receive Date: 20140304
  Receipt Date: 20140304
  Transmission Date: 20141002
  Serious: No
  Sender: FDA-Public Use
  Company Number: US-ABBVIE-13P-163-1076614-00

PATIENT
  Age: 23 Year
  Sex: Male
  Weight: 61.29 kg

DRUGS (6)
  1. HUMIRA [Suspect]
     Indication: CROHN^S DISEASE
     Dosage: FIRST LOADING DOSE
     Route: 058
     Dates: start: 201303, end: 201303
  2. HUMIRA [Suspect]
     Dosage: SECOND LOADIND DOSE
     Route: 058
     Dates: start: 201303, end: 201303
  3. HUMIRA [Suspect]
     Route: 058
     Dates: start: 20130411
  4. ONE-A-DAY [Concomitant]
     Indication: SUPPLEMENTATION THERAPY
     Route: 048
  5. VITAMIN D3 [Concomitant]
     Indication: SUPPLEMENTATION THERAPY
     Route: 048
  6. OMEGA RED [Concomitant]
     Indication: SUPPLEMENTATION THERAPY
     Route: 048

REACTIONS (3)
  - Device malfunction [Unknown]
  - Injection site pain [Not Recovered/Not Resolved]
  - Incorrect dose administered [Unknown]
